FAERS Safety Report 20911329 (Version 20)
Quarter: 2025Q2

REPORT INFORMATION
  Report Type: Report from Study
  Country: US (occurrence: US)
  Receive Date: 20220603
  Receipt Date: 20250418
  Transmission Date: 20250717
  Serious: Yes (Hospitalization, Other)
  Sender: TAKEDA
  Company Number: US-PAREXEL-2021-KAM-US003337

PATIENT
  Age: 67 Year
  Sex: Female
  Weight: 72 kg

DRUGS (66)
  1. GLASSIA [Suspect]
     Active Substance: .ALPHA.1-PROTEINASE INHIBITOR HUMAN
     Indication: Bronchiectasis
     Dosage: UNK UNK, 1/WEEK
     Dates: start: 20200917
  2. GLASSIA [Suspect]
     Active Substance: .ALPHA.1-PROTEINASE INHIBITOR HUMAN
     Indication: Alpha-1 antitrypsin deficiency
     Dosage: UNK UNK, 1/WEEK
     Dates: start: 20201022
  3. GLASSIA [Suspect]
     Active Substance: .ALPHA.1-PROTEINASE INHIBITOR HUMAN
     Dosage: UNK UNK, 1/WEEK
  4. GLASSIA [Suspect]
     Active Substance: .ALPHA.1-PROTEINASE INHIBITOR HUMAN
     Dosage: 75 MILLIGRAM/KILOGRAM, 1/WEEK
  5. GLASSIA [Suspect]
     Active Substance: .ALPHA.1-PROTEINASE INHIBITOR HUMAN
     Dosage: 100 MILLIGRAM/KILOGRAM, 1/WEEK
  6. GLASSIA [Suspect]
     Active Substance: .ALPHA.1-PROTEINASE INHIBITOR HUMAN
     Dosage: UNK UNK, 1/WEEK
  7. GLASSIA [Suspect]
     Active Substance: .ALPHA.1-PROTEINASE INHIBITOR HUMAN
     Dosage: 100 MILLIGRAM/KILOGRAM, 1/WEEK
     Dates: start: 20221026
  8. BACTRIM [Suspect]
     Active Substance: SULFAMETHOXAZOLE\TRIMETHOPRIM
     Indication: Product used for unknown indication
  9. LEVAQUIN [Suspect]
     Active Substance: LEVOFLOXACIN
     Indication: Product used for unknown indication
  10. EPINEPHRINE [Concomitant]
     Active Substance: EPINEPHRINE
  11. DOCUSATE SODIUM [Concomitant]
     Active Substance: DOCUSATE SODIUM
  12. DIPHENHYDRAMINE [Concomitant]
     Active Substance: DIPHENHYDRAMINE
  13. KETOROLAC TROMETHAMINE [Concomitant]
     Active Substance: KETOROLAC TROMETHAMINE
  14. Allergy relief d [Concomitant]
  15. PROLIA [Concomitant]
     Active Substance: DENOSUMAB
  16. SODIUM CHLORIDE [Concomitant]
     Active Substance: SODIUM CHLORIDE
  17. SODIUM CHLORIDE [Concomitant]
     Active Substance: SODIUM CHLORIDE
  18. LORAZEPAM [Concomitant]
     Active Substance: LORAZEPAM
  19. GUAIFENESIN DM [Concomitant]
     Active Substance: DEXTROMETHORPHAN\DEXTROMETHORPHAN HYDROBROMIDE\GUAIFENESIN
  20. VITAMIN D [Concomitant]
     Active Substance: VITAMIN D NOS
  21. AFRIN [Concomitant]
     Active Substance: OXYMETAZOLINE HYDROCHLORIDE
  22. LIDOCAINE [Concomitant]
     Active Substance: LIDOCAINE
  23. FLUTICASONE [Concomitant]
     Active Substance: FLUTICASONE
  24. TOBRAMYCIN [Concomitant]
     Active Substance: TOBRAMYCIN
  25. BENZONATATE [Concomitant]
     Active Substance: BENZONATATE
  26. FLUTICASONE PROPIONATE [Concomitant]
     Active Substance: FLUTICASONE PROPIONATE
  27. COLLAGENASE [Concomitant]
     Active Substance: COLLAGENASE CLOSTRIDIUM HISTOLYTICUM
  28. BUPROPION HYDROCHLORIDE [Concomitant]
     Active Substance: BUPROPION HYDROCHLORIDE
  29. PEPCID [Concomitant]
     Active Substance: FAMOTIDINE
  30. SYSTANE BALANCE [Concomitant]
     Active Substance: PROPYLENE GLYCOL
  31. DIPHENHYDRAMINE HYDROCHLORIDE [Concomitant]
     Active Substance: DIPHENHYDRAMINE HYDROCHLORIDE
  32. LETROZOLE [Concomitant]
     Active Substance: LETROZOLE
  33. LUBIPROSTONE [Concomitant]
     Active Substance: LUBIPROSTONE
  34. PRAVASTATIN SODIUM [Concomitant]
     Active Substance: PRAVASTATIN SODIUM
  35. ARIPIPRAZOLE [Concomitant]
     Active Substance: ARIPIPRAZOLE
  36. DOCUSATE [Concomitant]
     Active Substance: DOCUSATE
  37. FETZIMA [Concomitant]
     Active Substance: LEVOMILNACIPRAN HYDROCHLORIDE
  38. ONDANSETRON HYDROCHLORIDE [Concomitant]
     Active Substance: ONDANSETRON HYDROCHLORIDE
  39. Bacitracin Zinc [Concomitant]
  40. PRAVASTATIN [Concomitant]
     Active Substance: PRAVASTATIN
  41. VIRTUSSIN AC [Concomitant]
     Active Substance: CODEINE PHOSPHATE\GUAIFENESIN
  42. HEPARIN [Concomitant]
     Active Substance: HEPARIN SODIUM
  43. GUAIATUSSIN AC [Concomitant]
     Active Substance: CODEINE PHOSPHATE\GUAIFENESIN
  44. VENTOLIN HFA [Concomitant]
     Active Substance: ALBUTEROL SULFATE
  45. ONDANSETRON [Concomitant]
     Active Substance: ONDANSETRON
  46. OMEPRAZOLE [Concomitant]
     Active Substance: OMEPRAZOLE
  47. DIETARY SUPPLEMENT\HERBALS\MILK THISTLE [Concomitant]
     Active Substance: MILK THISTLE
  48. BUPROPION [Concomitant]
     Active Substance: BUPROPION
  49. VITAMIN D2 [Concomitant]
     Active Substance: ERGOCALCIFEROL
  50. LEVOFLOXACIN [Concomitant]
     Active Substance: LEVOFLOXACIN
  51. ACETAMINOPHEN\HYDROCODONE [Concomitant]
     Active Substance: ACETAMINOPHEN\HYDROCODONE
  52. PEPCID COMPLETE [Concomitant]
     Active Substance: CALCIUM CARBONATE\FAMOTIDINE\MAGNESIUM HYDROXIDE
  53. METAMUCIL [Concomitant]
     Active Substance: PLANTAGO SEED
  54. ALIGN [Concomitant]
     Active Substance: BIFIDOBACTERIUM LONGUM SUBSP. INFANTIS
  55. TERBINAFINE HYDROCHLORIDE [Concomitant]
     Active Substance: TERBINAFINE HYDROCHLORIDE
  56. CICLOPIROX [Concomitant]
     Active Substance: CICLOPIROX
  57. CALCIUM [Concomitant]
     Active Substance: CALCIUM
  58. DORZOLAMIDE [Concomitant]
     Active Substance: DORZOLAMIDE
  59. ALBUTEROL [Concomitant]
     Active Substance: ALBUTEROL
  60. VENLAFAXINE HCL [Concomitant]
     Active Substance: VENLAFAXINE HYDROCHLORIDE
  61. EZETIMIBE [Concomitant]
     Active Substance: EZETIMIBE
  62. CLINDAMYCIN HYDROCHLORIDE [Concomitant]
     Active Substance: CLINDAMYCIN HYDROCHLORIDE
  63. ALBUTEROL SULFATE [Concomitant]
     Active Substance: ALBUTEROL SULFATE
  64. ASPIRIN [Concomitant]
     Active Substance: ASPIRIN
  65. PROLASTIN [Concomitant]
     Active Substance: .ALPHA.1-PROTEINASE INHIBITOR HUMAN
  66. VITAMIN B [Concomitant]
     Active Substance: VITAMIN B

REACTIONS (43)
  - Hiatus hernia [Unknown]
  - Pneumonia pseudomonal [Unknown]
  - Pseudomonas infection [Unknown]
  - Sinus disorder [Unknown]
  - Breast cancer [Unknown]
  - Pharyngitis streptococcal [Unknown]
  - Staphylococcal infection [Unknown]
  - Ocular discomfort [Unknown]
  - Phlebitis [Unknown]
  - Nasopharyngitis [Unknown]
  - Weight increased [Unknown]
  - Oedema [Unknown]
  - Respiratory tract infection bacterial [Unknown]
  - Constipation [Unknown]
  - Gastrointestinal hypomotility [Unknown]
  - Head discomfort [Unknown]
  - Nasal congestion [Unknown]
  - Abdominal discomfort [Unknown]
  - Productive cough [Not Recovered/Not Resolved]
  - Haemorrhage [Unknown]
  - Nasal discomfort [Unknown]
  - Disorientation [Recovering/Resolving]
  - Ophthalmic migraine [Recovering/Resolving]
  - Intraocular pressure increased [Unknown]
  - Product use in unapproved indication [Unknown]
  - Pain [Unknown]
  - Oropharyngeal pain [Unknown]
  - Cyst [Unknown]
  - Skin turgor decreased [Unknown]
  - Weight decreased [Unknown]
  - Anxiety [Unknown]
  - Procedural pain [Unknown]
  - Amnesia [Unknown]
  - Increased appetite [Unknown]
  - Contusion [Recovering/Resolving]
  - Respiration abnormal [Unknown]
  - Somnolence [Not Recovered/Not Resolved]
  - Diarrhoea [Unknown]
  - Pruritus [Recovered/Resolved]
  - Sinusitis [Unknown]
  - Rhinorrhoea [Unknown]
  - Dizziness [Unknown]
  - Insurance issue [Unknown]

NARRATIVE: CASE EVENT DATE: 20200917
